FAERS Safety Report 7557103-2 (Version None)
Quarter: 2011Q2

REPORT INFORMATION
  Report Type: 
  Country: None (occurrence: None)
  Receive Date: 20110616
  Receipt Date: 20110616
  Transmission Date: 20111010
  Serious: Yes (Other)
  Sender: FDA-Public Use
  Company Number: None

PATIENT
  Age: 72 Year
  Sex: Male
  Weight: 83.4619 kg

DRUGS (1)
  1. ROFLUMILAST 500MCG [Suspect]
     Indication: CHRONIC OBSTRUCTIVE PULMONARY DISEASE
     Dosage: 1 TAB QHS PO
     Route: 048

REACTIONS (2)
  - NIGHTMARE [None]
  - INSOMNIA [None]
